FAERS Safety Report 20046021 (Version 1)
Quarter: 2021Q4

REPORT INFORMATION
  Report Type: Spontaneous
  Country: US (occurrence: None)
  Receive Date: 20211108
  Receipt Date: 20211108
  Transmission Date: 20220303
  Serious: No
  Sender: FDA-Public Use
  Company Number: None

PATIENT
  Age: 74 Year

DRUGS (1)
  1. AMBRISENTAN [Suspect]
     Active Substance: AMBRISENTAN
     Indication: Pulmonary arterial hypertension
     Dosage: FREQUENCY : DAILY;?
     Route: 048

REACTIONS (9)
  - Fatigue [None]
  - Restlessness [None]
  - Peripheral swelling [None]
  - Cough [None]
  - Dyspnoea exertional [None]
  - Nasal congestion [None]
  - Productive cough [None]
  - Constipation [None]
  - Musculoskeletal discomfort [None]

NARRATIVE: CASE EVENT DATE: 20211108
